FAERS Safety Report 24137410 (Version 5)
Quarter: 2024Q3

REPORT INFORMATION
  Report Type: Spontaneous
  Country: US (occurrence: US)
  Receive Date: 20240725
  Receipt Date: 20240930
  Transmission Date: 20241017
  Serious: Yes (Hospitalization, Other)
  Sender: PFIZER
  Company Number: US-PFIZER INC-202400222270

PATIENT
  Age: 46 Year
  Sex: Male

DRUGS (1)
  1. ELREXFIO [Suspect]
     Active Substance: ELRANATAMAB-BCMM
     Indication: Primary amyloidosis
     Dosage: CYCLIC (ONE FULL DOSE)
     Route: 058
     Dates: start: 20240201, end: 20240630

REACTIONS (4)
  - Cytokine release syndrome [Recovered/Resolved]
  - Thrombocytopenia [Unknown]
  - Off label use [Unknown]
  - Drug effective for unapproved indication [Unknown]

NARRATIVE: CASE EVENT DATE: 20240101
